FAERS Safety Report 9206935 (Version 1)
Quarter: 2013Q1

REPORT INFORMATION
  Report Type: Spontaneous
  Country: US (occurrence: None)
  Receive Date: 20120713
  Receipt Date: 20120713
  Transmission Date: 20140127
  Serious: No
  Sender: FDA-Public Use
  Company Number: PHEH2012US006836

PATIENT
  Age: 10 Year
  Sex: Male
  Weight: 34 kg

DRUGS (5)
  1. ILARIS [Suspect]
     Dosage: EVERY 8 WEEKS
     Route: 058
     Dates: start: 20110815
  2. MIRALAX (MAC (MACROGOL) [Concomitant]
  3. VIGAMOX (MOXIFLOXACIN HYDROCHLORIDE) [Concomitant]
  4. MULTIVITAMIN (VITAMINS NOS) [Concomitant]
  5. TYLENOL (PARACETAMOL) [Concomitant]

REACTIONS (2)
  - Malaise [None]
  - Drug ineffective [None]
